FAERS Safety Report 19719069 (Version 1)
Quarter: 2021Q3

REPORT INFORMATION
  Report Type: Spontaneous
  Country: CA (occurrence: CA)
  Receive Date: 20210819
  Receipt Date: 20210819
  Transmission Date: 20211014
  Serious: Yes (Hospitalization, Other)
  Sender: FDA-Public Use
  Company Number: CA-GLAXOSMITHKLINE-CACH2021AMR055821

PATIENT
  Age: 49 Year
  Sex: Female

DRUGS (2)
  1. TYLENOL EXTRA STRENGTH ORAL TABLET (ACETAMINOPHEN) [Concomitant]
     Indication: PRODUCT USED FOR UNKNOWN INDICATION
     Dosage: UNK
  2. ADVIL [Suspect]
     Active Substance: IBUPROFEN
     Indication: PRODUCT USED FOR UNKNOWN INDICATION
     Dosage: UNK

REACTIONS (12)
  - Endotracheal intubation [Unknown]
  - Sedative therapy [Unknown]
  - Hypoxia [Unknown]
  - Ocular hyperaemia [Unknown]
  - Anxiety [Unknown]
  - Dyspnoea [Unknown]
  - Agitation [Unknown]
  - Haemodialysis [Unknown]
  - Acute kidney injury [Unknown]
  - Hypertension [Unknown]
  - Metabolic acidosis [Unknown]
  - Oliguria [Unknown]
